FAERS Safety Report 9026072 (Version 1)
Quarter: 2013Q1

REPORT INFORMATION
  Report Type: Spontaneous
  Country: US (occurrence: None)
  Receive Date: 20130107
  Receipt Date: 20130107
  Transmission Date: 20140127
  Serious: Yes (Hospitalization)
  Sender: FDA-Public Use
  Company Number: DKLU1087566

PATIENT
  Age: 6 Year
  Sex: Male

DRUGS (3)
  1. SABRIL [Suspect]
     Indication: COMPLEX PARTIAL SEIZURES
     Dosage: 1000 MG MILLIGRAM (S), 2 IN 1 D, ORAL ?
     Route: 048
     Dates: start: 20091112
  2. DEPAKOTE [Concomitant]
  3. ACTH [Concomitant]

REACTIONS (1)
  - Surgery [None]
